FAERS Safety Report 5139895-5 (Version None)
Quarter: 2006Q4

REPORT INFORMATION
  Report Type: 
  Country: None (occurrence: None)
  Receive Date: 20061025
  Receipt Date: 20061025
  Transmission Date: 20070319
  Serious: Yes (Other)
  Sender: FDA-Public Use
  Company Number: None

PATIENT
  Age: 75 Year
  Sex: Male
  Weight: 74.4 kg

DRUGS (1)
  1. SEPTRA [Suspect]

REACTIONS (3)
  - PANCYTOPENIA [None]
  - RASH PAPULAR [None]
  - RENAL IMPAIRMENT [None]
